FAERS Safety Report 6502406-3 (Version None)
Quarter: 2009Q4

REPORT INFORMATION
  Report Type: 
  Country: None (occurrence: None)
  Receive Date: 20091216
  Receipt Date: 20091120
  Transmission Date: 20100525
  Serious: No
  Sender: FDA-Public Use
  Company Number: US-ABBOTT-09P-163-0610999-00

PATIENT
  Sex: Male

DRUGS (4)
  1. TRILIPIX [Suspect]
     Indication: HYPERLIPIDAEMIA
     Route: 048
  2. LYRICA [Concomitant]
     Indication: DRUG USE FOR UNKNOWN INDICATION
  3. TYLENOL (CAPLET) [Concomitant]
     Indication: DRUG USE FOR UNKNOWN INDICATION
  4. MULTI-VITAMIN [Concomitant]
     Indication: VITAMIN SUPPLEMENTATION

REACTIONS (1)
  - VISION BLURRED [None]
